FAERS Safety Report 7853842-4 (Version None)
Quarter: 2011Q4

REPORT INFORMATION
  Report Type: 
  Country: None (occurrence: None)
  Receive Date: 20111026
  Receipt Date: 20111017
  Transmission Date: 20120403
  Serious: Yes (Other)
  Sender: FDA-Public Use
  Company Number: US-ASTRAZENECA-2011SE62377

PATIENT
  Age: 65 Year
  Sex: Female
  Weight: 68 kg

DRUGS (6)
  1. SIMVASTATIN [Concomitant]
  2. NEXIUM [Concomitant]
  3. METOPROLOL TARTRATE [Concomitant]
  4. CIPROFLOXACIN [Concomitant]
  5. SERTRALINE HYDROCHLORIDE [Concomitant]
  6. SYMBICORT [Suspect]
     Dosage: 160/4.5 MCG
     Route: 055

REACTIONS (6)
  - ASTHMA [None]
  - PNEUMONIA [None]
  - PRODUCT QUALITY ISSUE [None]
  - INAPPROPRIATE SCHEDULE OF DRUG ADMINISTRATION [None]
  - DEVICE MALFUNCTION [None]
  - DRUG DOSE OMISSION [None]
